FAERS Safety Report 13951867 (Version 1)
Quarter: 2017Q3

REPORT INFORMATION
  Report Type: Spontaneous
  Country: US (occurrence: US)
  Receive Date: 20170908
  Receipt Date: 20170908
  Transmission Date: 20171128
  Serious: Yes (Hospitalization)
  Sender: FDA-Public Use
  Company Number: US-ACTELION-A-NJ2017-159114

PATIENT
  Age: 60 Year
  Sex: Male
  Weight: 67.57 kg

DRUGS (1)
  1. VELETRI [Suspect]
     Active Substance: EPOPROSTENOL
     Indication: PULMONARY ARTERIAL HYPERTENSION
     Dosage: 40 NG/KG, CONT INFUS
     Route: 042

REACTIONS (2)
  - Disease complication [Unknown]
  - Cardiac failure congestive [Unknown]
